FAERS Safety Report 19135544 (Version 2)
Quarter: 2023Q1

REPORT INFORMATION
  Report Type: Report from Study
  Country: TH (occurrence: TH)
  Receive Date: 20210414
  Receipt Date: 20230331
  Transmission Date: 20230418
  Serious: Yes (Death)
  Sender: FDA-Public Use
  Company Number: TH-JNJFOC-20210416817

PATIENT
  Sex: Male

DRUGS (1)
  1. IBRUTINIB [Suspect]
     Active Substance: IBRUTINIB
     Indication: Waldenstrom^s macroglobulinaemia
     Route: 048
     Dates: start: 20201221, end: 20210409

REACTIONS (1)
  - Death [Fatal]

NARRATIVE: CASE EVENT DATE: 20210409
